FAERS Safety Report 17520590 (Version 1)
Quarter: 2020Q1

REPORT INFORMATION
  Report Type: Spontaneous
  Country: US (occurrence: US)
  Receive Date: 20200309
  Receipt Date: 20200309
  Transmission Date: 20200409
  Serious: No
  Sender: FDA-Public Use
  Company Number: US-EMD SERONO-9149347

PATIENT
  Sex: Female

DRUGS (1)
  1. MAVENCLAD [Suspect]
     Active Substance: CLADRIBINE
     Indication: MULTIPLE SCLEROSIS
     Dosage: PATIENT RECEIVED MAVENCLAD THERAPY 6 WEEKS AGO OR APPROXIMATELY ONE AND HALF MONTH AGO (AS OF 24 FEB
     Dates: start: 202001

REACTIONS (3)
  - Product administration error [Unknown]
  - Headache [Recovered/Resolved]
  - Overdose [Unknown]

NARRATIVE: CASE EVENT DATE: 202001
